FAERS Safety Report 5179878-2 (Version None)
Quarter: 2006Q4

REPORT INFORMATION
  Report Type: 
  Country: None (occurrence: None)
  Receive Date: 20061211
  Receipt Date: 20061130
  Transmission Date: 20070319
  Serious: Yes (Other)
  Sender: FDA-Public Use
  Company Number: 2006123338

PATIENT
  Age: 22 Year
  Sex: Female

DRUGS (3)
  1. PREDNISOLONE [Suspect]
     Indication: HEART TRANSPLANT
  2. CYCLOSPORINE [Suspect]
     Indication: HEART TRANSPLANT
  3. AZATHIOPRINE [Suspect]
     Indication: HEART TRANSPLANT

REACTIONS (10)
  - BRONCHIECTASIS [None]
  - DRUG EXPOSURE BEFORE PREGNANCY [None]
  - DRUG LEVEL BELOW THERAPEUTIC [None]
  - FORCED EXPIRATORY VOLUME INCREASED [None]
  - LOWER RESPIRATORY TRACT INFECTION [None]
  - PREGNANCY [None]
  - PULMONARY FUNCTION TEST DECREASED [None]
  - RESPIRATORY DISORDER [None]
  - RESPIRATORY GAS EXCHANGE DISORDER [None]
  - STENOTROPHOMONAS INFECTION [None]
